FAERS Safety Report 8492097-7 (Version None)
Quarter: 2012Q2

REPORT INFORMATION
  Report Type: 
  Country: None (occurrence: None)
  Receive Date: 20120627
  Receipt Date: 20120616
  Transmission Date: 20120825
  Serious: Yes (Hospitalization)
  Sender: FDA-Public Use
  Company Number: IPC201206-000256

PATIENT
  Age: 62 Year
  Sex: Female

DRUGS (3)
  1. CLONIDINE [Suspect]
     Indication: HOT FLUSH
     Dosage: 0.2 MG, 42 TABLETS
  2. FUROSEMIDE [Suspect]
     Dosage: 40 MG, 58 TABLETS
  3. ACETAMINOPHEN [Suspect]

REACTIONS (7)
  - LOSS OF CONSCIOUSNESS [None]
  - HYPOTHERMIA [None]
  - BRADYCARDIA [None]
  - HYPOTENSION [None]
  - RESPIRATORY RATE INCREASED [None]
  - INTENTIONAL OVERDOSE [None]
  - SUICIDE ATTEMPT [None]
